FAERS Safety Report 4620353-9 (Version None)
Quarter: 2005Q1

REPORT INFORMATION
  Report Type: 
  Country: None (occurrence: None)
  Receive Date: 20050328
  Receipt Date: 20050318
  Transmission Date: 20050727
  Serious: Yes (Other)
  Sender: FDA-Public Use
  Company Number: PHEH2005US03405

PATIENT
  Age: 77 Year
  Sex: Female

DRUGS (4)
  1. GLEEVEC [Suspect]
     Indication: CHRONIC MYELOID LEUKAEMIA
     Dosage: 800 MG, BID
     Route: 048
     Dates: start: 20050228
  2. GLEEVEC [Suspect]
     Dosage: 200 MG, BID
     Route: 048
     Dates: start: 20030501, end: 20050228
  3. GLEEVEC [Suspect]
     Dosage: 200 MG, BID
     Route: 048
     Dates: start: 20050314
  4. PREDNISONE [Concomitant]
     Indication: CHRONIC MYELOID LEUKAEMIA
     Route: 048
     Dates: start: 20030101

REACTIONS (8)
  - CONFUSIONAL STATE [None]
  - FATIGUE [None]
  - HAEMATOCRIT INCREASED [None]
  - HEADACHE [None]
  - MEDICATION ERROR [None]
  - OCULAR HYPERAEMIA [None]
  - OEDEMA [None]
  - WHITE BLOOD CELL COUNT INCREASED [None]
